FAERS Safety Report 4815188-8 (Version None)
Quarter: 2005Q4

REPORT INFORMATION
  Report Type: 
  Country: None (occurrence: None)
  Receive Date: 20051028
  Receipt Date: 20050719
  Transmission Date: 20060501
  Serious: Yes (Hospitalization, Other)
  Sender: FDA-Public Use
  Company Number: US-MERCK-0507USA03136

PATIENT
  Age: 73 Year
  Sex: Female

DRUGS (43)
  1. CATAPRES [Concomitant]
     Indication: HYPERTENSION
     Route: 065
  2. FLUOXETINE [Concomitant]
     Indication: STRESS
     Route: 065
  3. HYZAAR [Concomitant]
     Indication: HYPERTENSION
     Route: 048
     Dates: start: 19990221
  4. MEVACOR [Concomitant]
     Indication: BLOOD CHOLESTEROL INCREASED
     Route: 048
  5. MEVACOR [Concomitant]
     Route: 048
  6. ORABET (METFORMIN HYDROCHLORIDE) [Concomitant]
     Indication: DIABETES MELLITUS
     Route: 065
  7. NORVASC [Concomitant]
     Indication: CARDIAC DISORDER
     Route: 065
     Dates: start: 19990220, end: 20050101
  8. PRAVACHOL [Concomitant]
     Indication: BLOOD CHOLESTEROL INCREASED
     Route: 065
  9. DETROL [Concomitant]
     Indication: BLADDER SPASM
     Route: 065
  10. GLUCOPHAGE [Concomitant]
     Indication: DIABETES MELLITUS
     Route: 065
  11. LEVAQUIN [Concomitant]
     Indication: URINARY TRACT INFECTION
     Route: 065
  12. MACROBID [Concomitant]
     Route: 065
  13. PREVACID [Concomitant]
     Indication: ULCER
     Route: 065
  14. PROZAC [Concomitant]
     Indication: STRESS
     Route: 065
  15. ZOCOR [Concomitant]
     Indication: BLOOD CHOLESTEROL INCREASED
     Route: 048
     Dates: start: 19990227, end: 20030101
  16. CELEBREX [Concomitant]
     Route: 065
     Dates: start: 19990101, end: 20000101
  17. FUROSEMIDE [Concomitant]
     Indication: HYPERTENSION
     Route: 065
     Dates: start: 20000703, end: 20000101
  18. FUROSEMIDE [Concomitant]
     Indication: POLYURIA
     Route: 065
     Dates: start: 20000703, end: 20000101
  19. ESTRADIOL [Concomitant]
     Indication: HORMONE REPLACEMENT THERAPY
     Route: 065
     Dates: start: 19990405, end: 20020306
  20. ESTRADIOL [Concomitant]
     Route: 065
     Dates: start: 19990405, end: 20020306
  21. CEFTIN [Concomitant]
     Indication: URINARY TRACT INFECTION
     Route: 065
  22. CEPHALEXIN [Concomitant]
     Indication: URINARY TRACT INFECTION
     Route: 065
  23. CIPRO [Concomitant]
     Indication: URINARY TRACT INFECTION
     Route: 065
  24. DITROPAN [Concomitant]
     Indication: BLADDER SPASM
     Route: 065
  25. MOBIC [Concomitant]
     Indication: PAIN
     Route: 065
  26. CARISOPRODOL [Concomitant]
     Indication: MUSCLE RELAXANT THERAPY
     Route: 065
  27. ENULOSE [Concomitant]
     Indication: CONSTIPATION
     Route: 065
  28. IBUPROFEN [Concomitant]
     Indication: PAIN
     Route: 065
     Dates: end: 20020101
  29. IBUPROFEN [Concomitant]
     Route: 065
     Dates: end: 20020101
  30. MINOCYCLINE [Concomitant]
     Route: 065
  31. NITROFURANTOIN [Concomitant]
     Indication: URINARY TRACT INFECTION
     Route: 065
  32. POLY IRON 150 [Concomitant]
     Indication: BLOOD IRON DECREASED
     Route: 065
  33. POTASSIUM (UNSPECIFIED) [Concomitant]
     Indication: MEDICAL DIET
     Route: 065
  34. PHENAZOPYRIDINE HYDROCHLORIDE [Concomitant]
     Route: 065
  35. RANITIDINE [Concomitant]
     Indication: GASTRIC DISORDER
     Route: 065
  36. TRIMETHOPRIM [Concomitant]
     Indication: MUSCLE RELAXANT THERAPY
     Route: 065
  37. WARFARIN [Concomitant]
     Indication: BLOOD DISORDER
     Route: 065
  38. XENICAL [Concomitant]
     Indication: WEIGHT
     Route: 065
  39. ZITHROMAX [Concomitant]
     Indication: URINARY TRACT INFECTION
     Route: 065
  40. ACETAMINOPHEN AND OXYCODONE HYDROCHLORIDE [Concomitant]
     Indication: PAIN
     Route: 065
  41. VIOXX [Suspect]
     Indication: ARTHRALGIA
     Route: 048
     Dates: start: 20010201, end: 20040701
  42. [THERAPY UNSPECIFIED] [Concomitant]
     Indication: URINARY TRACT INFECTION
     Route: 065
  43. ACETAMINOPHEN AND HYDROCODONE BITARTRATE [Concomitant]
     Indication: NASAL CONGESTION
     Route: 065

REACTIONS (8)
  - ABDOMINAL HERNIA REPAIR [None]
  - CHOLECYSTECTOMY [None]
  - GASTRIC DISORDER [None]
  - KNEE ARTHROPLASTY [None]
  - MYOCARDIAL INFARCTION [None]
  - PAIN [None]
  - SPINAL COLUMN STENOSIS [None]
  - STRESS [None]
